FAERS Safety Report 26184990 (Version 1)
Quarter: 2025Q4

REPORT INFORMATION
  Report Type: Spontaneous
  Country: EU (occurrence: EU)
  Receive Date: 20251222
  Receipt Date: 20251222
  Transmission Date: 20260118
  Serious: Yes (Death, Other)
  Sender: ROCHE
  Company Number: None

PATIENT
  Age: 67 Year
  Sex: Female
  Weight: 54 kg

DRUGS (17)
  1. BEVACIZUMAB [Suspect]
     Active Substance: BEVACIZUMAB
     Indication: Cervix carcinoma
     Dosage: 6 CYCLES
     Dates: end: 20251030
  2. KEYTRUDA [Suspect]
     Active Substance: PEMBROLIZUMAB
     Indication: Cervix carcinoma
     Dosage: 6 CYCLES
     Dates: end: 20251030
  3. CISPLATIN [Suspect]
     Active Substance: CISPLATIN
     Indication: Cervix carcinoma
     Dosage: 3 CYCLES
  4. PACLITAXEL [Suspect]
     Active Substance: PACLITAXEL
     Indication: Cervix carcinoma
     Dosage: 3 CYCLES
  5. Alendrogen 70MG [Concomitant]
     Dosage: 1X WEEKLY ON SUNDAYS
     Route: 048
  6. Rosucard 20MG [Concomitant]
     Dosage: 0-0-1
     Route: 048
  7. Fortilip 267mg [Concomitant]
     Route: 048
  8. Ascorutin 100MG/20MG [Concomitant]
     Dosage: 100MG/20MG 2-2-2
     Route: 048
  9. Caltrate D3 500MG/1000IU [Concomitant]
     Indication: Osteoporosis
     Dosage: 500MG/1000IU 0-0-1
     Route: 048
  10. Furon 40MG [Concomitant]
     Dosage: 1-0-0
     Route: 048
  11. Vigantol 0.5MG/ML [Concomitant]
     Dosage: 1X WEEKLY ON SATURDAYS
     Route: 048
  12. ENTECAVIR [Concomitant]
     Active Substance: ENTECAVIR
     Indication: Chronic hepatitis B
  13. Mulado 500MG [Concomitant]
     Indication: Type 2 diabetes mellitus
     Dosage: 1-0-0
     Route: 048
  14. Verospiron 25MG [Concomitant]
     Dosage: 0-1/2-0
     Route: 048
  15. DEXKETOPROFEN\TRAMADOL [Concomitant]
     Active Substance: DEXKETOPROFEN\TRAMADOL
  16. BISOPROLOL FUMARATE [Concomitant]
     Active Substance: BISOPROLOL FUMARATE
     Dosage: 1-0-0
     Route: 048
  17. Zaldiar 37.5MG/325MG [Concomitant]

REACTIONS (6)
  - Immune-mediated lung disease [Fatal]
  - Polyneuropathy [Not Recovered/Not Resolved]
  - Haemorrhage [Unknown]
  - Pain in extremity [Not Recovered/Not Resolved]
  - Acute respiratory failure [Recovered/Resolved]
  - Cardiac failure [Fatal]

NARRATIVE: CASE EVENT DATE: 20250101
